FAERS Safety Report 20682411 (Version 1)
Quarter: 2022Q2

REPORT INFORMATION
  Report Type: Spontaneous
  Country: US (occurrence: US)
  Receive Date: 20220407
  Receipt Date: 20220407
  Transmission Date: 20220720
  Serious: No
  Sender: FDA-Public Use
  Company Number: US-BAUSCH-BL-2022-008212

PATIENT
  Sex: Male

DRUGS (2)
  1. LUMIFY [Suspect]
     Active Substance: BRIMONIDINE TARTRATE
     Indication: Product used for unknown indication
     Route: 047
  2. LUMIFY [Suspect]
     Active Substance: BRIMONIDINE TARTRATE

REACTIONS (5)
  - Skin exfoliation [Unknown]
  - Periorbital swelling [Unknown]
  - Swelling of eyelid [Unknown]
  - Erythema of eyelid [Unknown]
  - Product quality issue [Unknown]
